FAERS Safety Report 6022159-5 (Version None)
Quarter: 2008Q4

REPORT INFORMATION
  Report Type: 
  Country: None (occurrence: None)
  Receive Date: 20081229
  Receipt Date: 20081224
  Transmission Date: 20090506
  Serious: Yes (Hospitalization)
  Sender: FDA-Public Use
  Company Number: JP-B.I. PHARMACEUTICALS,INC./RIDGEFIELD-2008-BP-15597NB

PATIENT
  Age: 61 Year
  Sex: Female

DRUGS (4)
  1. MICARDIS [Suspect]
     Indication: HYPERTENSION
     Dosage: 40MG
     Route: 048
     Dates: start: 20040502, end: 20080919
  2. AMLODIN [Suspect]
     Dosage: 5MG
     Route: 048
     Dates: end: 20080919
  3. MEVALOTIN [Suspect]
     Dosage: 10MG
     Route: 048
     Dates: end: 20080917
  4. ANCARON [Suspect]
     Dosage: 100MG
     Route: 048
     Dates: end: 20080919

REACTIONS (1)
  - HEPATITIS ACUTE [None]
